FAERS Safety Report 8546461-8 (Version None)
Quarter: 2012Q3

REPORT INFORMATION
  Report Type: 
  Country: None (occurrence: None)
  Receive Date: 20120727
  Receipt Date: 20120110
  Transmission Date: 20120928
  Serious: No
  Sender: FDA-Public Use
  Company Number: US-ASTRAZENECA-2012SE02185

PATIENT
  Age: 55 Year
  Sex: Female

DRUGS (2)
  1. SEROQUEL XR [Suspect]
     Indication: DEPRESSION
     Route: 048
  2. CITALOPRAM HYDROBROMIDE [Concomitant]

REACTIONS (6)
  - CRYING [None]
  - CONDITION AGGRAVATED [None]
  - SOCIAL AVOIDANT BEHAVIOUR [None]
  - DRUG DOSE OMISSION [None]
  - DEPRESSION [None]
  - PANIC ATTACK [None]
